FAERS Safety Report 19845675 (Version 6)
Quarter: 2023Q2

REPORT INFORMATION
  Report Type: Report from Study
  Country: CA (occurrence: CA)
  Receive Date: 20210916
  Receipt Date: 20230519
  Transmission Date: 20230721
  Serious: Yes (Hospitalization, Other)
  Sender: FDA-Public Use
  Company Number: CA-TAKEDA-2017TUS015998

PATIENT
  Age: 55 Year
  Sex: Female

DRUGS (10)
  1. VEDOLIZUMAB [Suspect]
     Active Substance: VEDOLIZUMAB
     Indication: Crohn^s disease
     Dosage: 300 MILIGRAM
     Route: 042
     Dates: start: 20160609
  2. VEDOLIZUMAB [Suspect]
     Active Substance: VEDOLIZUMAB
     Dosage: 300 MILIGRAM, Q6 WEEKS
     Route: 042
     Dates: start: 20161228
  3. VEDOLIZUMAB [Suspect]
     Active Substance: VEDOLIZUMAB
     Dosage: 300 MILLIGRAM, Q4WEEKS
     Route: 042
     Dates: start: 20191105, end: 2021
  4. VEDOLIZUMAB [Suspect]
     Active Substance: VEDOLIZUMAB
     Indication: Crohn^s disease
     Dosage: UNK UNK, Q2WEEKS
     Route: 058
     Dates: start: 20211104
  5. VEDOLIZUMAB [Suspect]
     Active Substance: VEDOLIZUMAB
     Dosage: UNK UNK, Q2WEEKS
     Route: 058
  6. TRAMADOL [Concomitant]
     Active Substance: TRAMADOL
     Dosage: UNK UNK, QD
     Route: 048
     Dates: start: 201603
  7. LIDOCAINE [Concomitant]
     Active Substance: LIDOCAINE
     Indication: Ulcer
     Dosage: UNK
  8. Salofalk [Concomitant]
     Dosage: UNK
  9. METHOTREXATE [Concomitant]
     Active Substance: METHOTREXATE
     Dosage: 15 MILLIGRAM
     Dates: start: 201606
  10. HYDROXYZINE [Concomitant]
     Active Substance: HYDROXYZINE HYDROCHLORIDE
     Dosage: 10 GRAM
     Dates: start: 201603

REACTIONS (9)
  - Fistula [Unknown]
  - Post procedural infection [Unknown]
  - Crohn^s disease [Unknown]
  - Cellulitis [Unknown]
  - Poor venous access [Unknown]
  - Fistula discharge [Unknown]
  - Diarrhoea [Unknown]
  - Off label use [Unknown]
  - Arthralgia [Unknown]

NARRATIVE: CASE EVENT DATE: 20161228
